FAERS Safety Report 5144268-5 (Version None)
Quarter: 2006Q4

REPORT INFORMATION
  Report Type: 
  Country: None (occurrence: None)
  Receive Date: 20061106
  Receipt Date: 20061011
  Transmission Date: 20070319
  Serious: Yes (Hospitalization)
  Sender: FDA-Public Use
  Company Number: DE-PURDUE-DEU_2006_0002550

PATIENT
  Age: 74 Year
  Sex: Female
  Weight: 49 kg

DRUGS (4)
  1. PALLADON RETARD 4 MG [Suspect]
     Indication: CANCER PAIN
     Dosage: 8 MG, BID
     Route: 048
     Dates: start: 20060711, end: 20060723
  2. PALLADON RETARD 4 MG [Suspect]
     Dosage: 4 MG, BID
     Route: 048
     Dates: start: 20060705, end: 20060710
  3. NOVALGIN [Concomitant]
  4. MOVICOL [Concomitant]

REACTIONS (1)
  - HOSPITALISATION [None]
